FAERS Safety Report 11833650 (Version 2)
Quarter: 2017Q3

REPORT INFORMATION
  Report Type: Report from Study
  Country: US (occurrence: US)
  Receive Date: 20151214
  Receipt Date: 20170830
  Transmission Date: 20171127
  Serious: No
  Sender: FDA-Public Use
  Company Number: US-TEVA-617624ACC

PATIENT

DRUGS (3)
  1. BENDAMUSTINE HYDROCHLORIDE. [Suspect]
     Active Substance: BENDAMUSTINE HYDROCHLORIDE
     Indication: LYMPHOMA
     Dosage: DAYS 1 AND 2
     Route: 042
  2. RITUXIMAB. [Concomitant]
     Active Substance: RITUXIMAB
     Indication: LYMPHOMA
     Dosage: ON DAY 1 OF EACH 28 DAY CYCLE
  3. VELIPARIB [Concomitant]
     Active Substance: VELIPARIB
     Indication: LYMPHOMA
     Dosage: 600 MILLIGRAM DAILY; CYCLIC, ON DAYS 1-7
     Route: 048

REACTIONS (1)
  - Prescribed underdose [Unknown]
